FAERS Safety Report 21069502 (Version 1)
Quarter: 2022Q3

REPORT INFORMATION
  Report Type: Spontaneous
  Country: GR (occurrence: GR)
  Receive Date: 20220712
  Receipt Date: 20220712
  Transmission Date: 20221026
  Serious: Yes (Other)
  Sender: FDA-Public Use
  Company Number: GR-ROCHE-3129845

PATIENT
  Age: 28 Year
  Sex: Female

DRUGS (2)
  1. CAPECITABINE [Suspect]
     Active Substance: CAPECITABINE
     Indication: Product used for unknown indication
     Dosage: UNK
     Route: 048
  2. TRASTUZUMAB [Suspect]
     Active Substance: TRASTUZUMAB
     Indication: Breast cancer metastatic
     Dosage: UNK
     Route: 065

REACTIONS (1)
  - Breast cancer metastatic [Unknown]
